FAERS Safety Report 20854900 (Version 1)
Quarter: 2022Q2

REPORT INFORMATION
  Report Type: Spontaneous
  Country: US (occurrence: None)
  Receive Date: 20220520
  Receipt Date: 20220520
  Transmission Date: 20220721
  Serious: Yes (Hospitalization)
  Sender: FDA-Public Use
  Company Number: None

PATIENT
  Sex: Male
  Weight: 49.4 kg

DRUGS (8)
  1. CYCLOPHOSPHAMIDE [Suspect]
     Active Substance: CYCLOPHOSPHAMIDE
     Dates: end: 20210220
  2. CYTARABINE [Suspect]
     Active Substance: CYTARABINE
     Dates: end: 20210218
  3. DOXORUBICIN HYDROCHLORIDE [Suspect]
     Active Substance: DOXORUBICIN HYDROCHLORIDE
     Dates: end: 20210221
  4. MESNA [Suspect]
     Active Substance: MESNA
     Dates: end: 20210221
  5. METHOTREXATE [Suspect]
     Active Substance: METHOTREXATE
     Dates: end: 20210311
  6. VINCRISTINE SULFATE [Suspect]
     Active Substance: VINCRISTINE SULFATE
     Dates: end: 20210221
  7. SPRYCEL [Suspect]
     Active Substance: DASATINIB
     Dates: end: 20210322
  8. PREDNISONE [Suspect]
     Active Substance: PREDNISONE
     Dates: end: 20210217

REACTIONS (11)
  - Dizziness [None]
  - Diarrhoea [None]
  - Flatulence [None]
  - Faeces discoloured [None]
  - Occult blood positive [None]
  - Gastric mucosa erythema [None]
  - Gastritis erosive [None]
  - Diverticulitis [None]
  - Haemorrhoids [None]
  - Faeces discoloured [None]
  - Haemoglobin decreased [None]

NARRATIVE: CASE EVENT DATE: 20220322
